FAERS Safety Report 8372288-6 (Version None)
Quarter: 2012Q2

REPORT INFORMATION
  Report Type: 
  Country: None (occurrence: None)
  Receive Date: 20120521
  Receipt Date: 20120511
  Transmission Date: 20120825
  Serious: Yes (Hospitalization)
  Sender: FDA-Public Use
  Company Number: PR-BRISTOL-MYERS SQUIBB COMPANY-16587933

PATIENT
  Sex: Female

DRUGS (1)
  1. ONGLYZA [Suspect]
     Dosage: 1 DF = 1 TO 2 DOSAGE

REACTIONS (2)
  - HAEMOPTYSIS [None]
  - CONJUNCTIVAL HAEMORRHAGE [None]
